FAERS Safety Report 5480390-1 (Version None)
Quarter: 2007Q4

REPORT INFORMATION
  Report Type: 
  Country: None (occurrence: None)
  Receive Date: 20071009
  Receipt Date: 20071004
  Transmission Date: 20080405
  Serious: Yes (Hospitalization)
  Sender: FDA-Public Use
  Company Number: US-MERCK-0709USA01942

PATIENT
  Age: 51 Year
  Sex: Female

DRUGS (3)
  1. JANUVIA [Suspect]
     Indication: TYPE 2 DIABETES MELLITUS
     Route: 048
  2. JANUVIA [Suspect]
     Route: 048
  3. METFORMIN [Suspect]
     Route: 065

REACTIONS (3)
  - FIBROMYALGIA [None]
  - GASTRITIS [None]
  - WHITE BLOOD CELL COUNT INCREASED [None]
